FAERS Safety Report 10599733 (Version 3)
Quarter: 2014Q4

REPORT INFORMATION
  Report Type: Spontaneous
  Country: US (occurrence: US)
  Receive Date: 20141121
  Receipt Date: 20141226
  Transmission Date: 20150529
  Serious: No
  Sender: FDA-Public Use
  Company Number: US-009507513-1411USA006626

PATIENT
  Age: 50 Year
  Sex: Male
  Weight: 117.91 kg

DRUGS (1)
  1. ASMANEX [Suspect]
     Active Substance: MOMETASONE FUROATE
     Indication: LUNG DISORDER
     Dosage: STRENGTH DOSE 220 (UNITS NOT REPORTED)1 PUFF DAILY
     Route: 055
     Dates: start: 20141107

REACTIONS (3)
  - Product container issue [Unknown]
  - Drug ineffective for unapproved indication [Unknown]
  - Drug dose omission [Unknown]

NARRATIVE: CASE EVENT DATE: 201411
